FAERS Safety Report 12480133 (Version 1)
Quarter: 2016Q2

REPORT INFORMATION
  Report Type: Spontaneous
  Country: US (occurrence: None)
  Receive Date: 20160617
  Receipt Date: 20160617
  Transmission Date: 20160815
  Serious: Yes (Life-Threatening, Hospitalization, Other)
  Sender: FDA-Public Use
  Company Number: None

PATIENT
  Age: 42 Year
  Sex: Female
  Weight: 85.73 kg

DRUGS (1)
  1. CHANTIX [Suspect]
     Active Substance: VARENICLINE TARTRATE
     Indication: SMOKING CESSATION THERAPY
     Dates: start: 20070409, end: 20070627

REACTIONS (6)
  - Homicidal ideation [None]
  - Impaired driving ability [None]
  - Anxiety [None]
  - Suicidal ideation [None]
  - Brief psychotic disorder, with postpartum onset [None]
  - Product label issue [None]

NARRATIVE: CASE EVENT DATE: 20070701
